FAERS Safety Report 5932711-0 (Version None)
Quarter: 2008Q4

REPORT INFORMATION
  Report Type: 
  Country: None (occurrence: None)
  Receive Date: 20081028
  Receipt Date: 20081024
  Transmission Date: 20090506
  Serious: Yes (Hospitalization)
  Sender: FDA-Public Use
  Company Number: JP-EISAI MEDICAL RESEARCH-E2020-03357-SPO-JP

PATIENT
  Age: 76 Year
  Sex: Male

DRUGS (3)
  1. ARICEPT [Suspect]
     Indication: COGNITIVE DISORDER
     Dosage: UNKNOWN
     Route: 048
     Dates: start: 20040101, end: 20040101
  2. ANTI-PARKINSONISM AGENTS [Concomitant]
     Indication: BRADYKINESIA
     Route: 048
     Dates: start: 20040101, end: 20040101
  3. ANTI-PARKINSONISM AGENTS [Concomitant]
     Indication: PARKINSONIAN GAIT

REACTIONS (1)
  - RHABDOMYOLYSIS [None]
